FAERS Safety Report 14460896 (Version 1)
Quarter: 2018Q1

REPORT INFORMATION
  Report Type: Other
  Country: US (occurrence: US)
  Receive Date: 20180130
  Receipt Date: 20180130
  Transmission Date: 20180509
  Serious: No
  Sender: FDA-Public Use
  Company Number: US-ACORDA-ACO_142271_2017

PATIENT
  Age: 37 Year
  Sex: Male

DRUGS (2)
  1. ZINBRYTA [Suspect]
     Active Substance: DACLIZUMAB
     Indication: MULTIPLE SCLEROSIS
     Dosage: 150 MG, MONTHLY
     Route: 058
  2. AMPYRA [Suspect]
     Active Substance: DALFAMPRIDINE
     Indication: MULTIPLE SCLEROSIS
     Dosage: 10 MG, Q 12 HRS
     Route: 048

REACTIONS (1)
  - Multiple sclerosis [Unknown]

NARRATIVE: CASE EVENT DATE: 20170920
